FAERS Safety Report 5260851-0 (Version None)
Quarter: 2007Q1

REPORT INFORMATION
  Report Type: 
  Country: None (occurrence: None)
  Receive Date: 20070306
  Receipt Date: 20070220
  Transmission Date: 20070707
  Serious: Yes (Hospitalization)
  Sender: FDA-Public Use
  Company Number: 2007-00446

PATIENT
  Age: 65 Year
  Sex: Male
  Weight: 71 kg

DRUGS (9)
  1. VELCADE [Suspect]
     Indication: T-CELL LYMPHOMA
     Dosage: 2.67 MG, INTRAVENOUS
     Route: 042
     Dates: start: 20061025, end: 20070210
  2. DOXORUBICIN HCL [Suspect]
     Indication: T-CELL LYMPHOMA
     Dosage: 134.00 MG, INTRAVENOUS
     Route: 042
     Dates: start: 20061025, end: 20061219
  3. CYCLOPHOSPHAMIDE [Suspect]
     Indication: T-CELL LYMPHOMA
     Dosage: 2140.00 MG, INTRAVENOUS
     Route: 042
     Dates: start: 20061025, end: 20061219
  4. ELDISINE [Suspect]
     Indication: T-CELL LYMPHOMA
     Dosage: 3.60 MG, INTRAVENOUS
     Route: 042
     Dates: start: 20061025, end: 20061222
  5. PREDNISONE [Suspect]
     Indication: T-CELL LYMPHOMA
     Dosage: 106.80 MG, ORAL
     Route: 048
     Dates: start: 20061025, end: 20061222
  6. METHOTREXATE [Suspect]
     Indication: T-CELL LYMPHOMA
     Dosage: 15.00 MG, INTRATHECAL 5100.00 MG, INTRAVENOUS
     Route: 037
     Dates: start: 20061025, end: 20061219
  7. METHOTREXATE [Suspect]
     Indication: T-CELL LYMPHOMA
     Dosage: 15.00 MG, INTRATHECAL 5100.00 MG, INTRAVENOUS
     Route: 037
     Dates: start: 20070127, end: 20070210
  8. BLEOMYCIN [Suspect]
     Indication: T-CELL LYMPHOMA
     Dosage: 10.00 MG, INTRAVENOUS
     Route: 042
     Dates: start: 20061025, end: 20061222
  9. BACTRIM [Concomitant]

REACTIONS (3)
  - CLOSTRIDIUM DIFFICILE COLITIS [None]
  - LUNG NEOPLASM [None]
  - PNEUMONITIS [None]
